FAERS Safety Report 6423866-2 (Version None)
Quarter: 2009Q4

REPORT INFORMATION
  Report Type: 
  Country: None (occurrence: None)
  Receive Date: 20091030
  Receipt Date: 20091030
  Transmission Date: 20100525
  Serious: Yes (Hospitalization)
  Sender: FDA-Public Use
  Company Number: None

PATIENT
  Age: 72 Year
  Sex: Male
  Weight: 72.8 kg

DRUGS (2)
  1. ENOXAPARIN [Suspect]
     Indication: CARDIOVASCULAR DISORDER
     Dosage: 60 MG OTHER SQ
     Route: 058
     Dates: start: 20090609, end: 20090619
  2. ENOXAPARIN [Suspect]
     Indication: SURGERY
     Dosage: 60 MG OTHER SQ
     Route: 058
     Dates: start: 20090609, end: 20090619

REACTIONS (2)
  - HAEMATOMA [None]
  - POST PROCEDURAL COMPLICATION [None]
